FAERS Safety Report 22028747 (Version 1)
Quarter: 2023Q1

REPORT INFORMATION
  Report Type: Spontaneous
  Country: US (occurrence: US)
  Receive Date: 20230223
  Receipt Date: 20230223
  Transmission Date: 20230418
  Serious: No
  Sender: FDA-Public Use
  Company Number: US-Cardinal Health 414-NPHS-AE-22-13

PATIENT
  Age: 58 Year
  Sex: Male
  Weight: 110.2 kg

DRUGS (3)
  1. SULFAMETHOXAZOLE\TRIMETHOPRIM [Concomitant]
     Active Substance: SULFAMETHOXAZOLE\TRIMETHOPRIM
     Indication: Localised infection
  2. DOXYCYCLINE HYCLATE [Concomitant]
     Active Substance: DOXYCYCLINE HYCLATE
     Indication: Localised infection
  3. TECHNETIUM TC-99M MEDRONATE KIT [Suspect]
     Active Substance: TECHNETIUM TC-99M MEDRONATE
     Indication: Bone scan
     Route: 042
     Dates: start: 20220610, end: 20220610

REACTIONS (6)
  - Urticaria [Unknown]
  - Off label use [Recovered/Resolved]
  - Swelling [Unknown]
  - Blister [Unknown]
  - Temperature intolerance [Unknown]
  - Photosensitivity reaction [Unknown]

NARRATIVE: CASE EVENT DATE: 20220610
